FAERS Safety Report 13039042 (Version 2)
Quarter: 2017Q1

REPORT INFORMATION
  Report Type: Spontaneous
  Country: AU (occurrence: AU)
  Receive Date: 20161219
  Receipt Date: 20170130
  Transmission Date: 20170428
  Serious: Yes (Hospitalization, Other)
  Sender: FDA-Public Use
  Company Number: AU-AMGEN-AUSSP2016176819

PATIENT
  Age: 58 Year
  Sex: Female
  Weight: 73.3 kg

DRUGS (2)
  1. PROLIA [Suspect]
     Active Substance: DENOSUMAB
     Indication: OSTEOPOROSIS
     Dosage: 60 MG, Q6MO
     Route: 058
     Dates: start: 201505
  2. OSTELIN [Concomitant]
     Active Substance: ERGOCALCIFEROL
     Indication: OSTEOPOROSIS
     Dosage: 1000 IU, QD
     Dates: start: 20130112

REACTIONS (2)
  - Bunion operation [Recovering/Resolving]
  - Arthrodesis [Recovering/Resolving]

NARRATIVE: CASE EVENT DATE: 20161129
